FAERS Safety Report 8159118-2 (Version None)
Quarter: 2012Q1

REPORT INFORMATION
  Report Type: 
  Country: None (occurrence: None)
  Receive Date: 20120223
  Receipt Date: 20120213
  Transmission Date: 20120608
  Serious: Yes (Life-Threatening, Hospitalization, Other)
  Sender: FDA-Public Use
  Company Number: FR-ELI_LILLY_AND_COMPANY-FR201202003216

PATIENT
  Sex: Female

DRUGS (7)
  1. TEGRETOL [Concomitant]
     Dosage: UNK
  2. TEGRETOL [Concomitant]
     Dosage: 1.5 DF, BID
  3. URBANYL [Concomitant]
     Dosage: 5 MG, BID
  4. EFFEXOR [Concomitant]
     Dosage: 75 MG, QD
  5. ZYPREXA [Suspect]
     Dosage: 5 MG, QD
     Route: 048
  6. KEPPRA [Concomitant]
     Dosage: 500 MG, BID
  7. LEXOMIL [Concomitant]
     Dosage: 3 MG, QD

REACTIONS (12)
  - PNEUMONIA ASPIRATION [None]
  - INAPPROPRIATE ANTIDIURETIC HORMONE SECRETION [None]
  - TONGUE BITING [None]
  - HEADACHE [None]
  - CONFUSIONAL STATE [None]
  - SOMNOLENCE [None]
  - CEREBELLAR SYNDROME [None]
  - HYPONATRAEMIA [None]
  - NYSTAGMUS [None]
  - INTENTIONAL DRUG MISUSE [None]
  - DRUG LEVEL ABOVE THERAPEUTIC [None]
  - PSYCHOMOTOR RETARDATION [None]
